FAERS Safety Report 17781540 (Version 1)
Quarter: 2020Q2

REPORT INFORMATION
  Report Type: Spontaneous
  Country: US (occurrence: US)
  Receive Date: 20200513
  Receipt Date: 20200513
  Transmission Date: 20200714
  Serious: Yes (Life-Threatening, Disabling)
  Sender: FDA-Public Use
  Company Number: None

PATIENT
  Age: 57 Year
  Sex: Female
  Weight: 56.25 kg

DRUGS (18)
  1. OLANZAPINE. [Suspect]
     Active Substance: OLANZAPINE
     Indication: NEURALGIA
  2. AMITRIPTYLIN [Suspect]
     Active Substance: AMITRIPTYLINE
  3. ACYCLOVIR. [Concomitant]
     Active Substance: ACYCLOVIR
  4. FLONASE [Concomitant]
     Active Substance: FLUTICASONE PROPIONATE
  5. VITAMIN D [Concomitant]
     Active Substance: VITAMIN D NOS
  6. MUCINEX [Concomitant]
     Active Substance: GUAIFENESIN
  7. LEXIVA [Concomitant]
     Active Substance: FOSAMPRENAVIR CALCIUM
  8. ATIVAN [Concomitant]
     Active Substance: LORAZEPAM
  9. EPIVIR [Concomitant]
     Active Substance: LAMIVUDINE
  10. PENTOXIFYLLINE. [Concomitant]
     Active Substance: PENTOXIFYLLINE
  11. LOVAZA [Concomitant]
     Active Substance: OMEGA-3-ACID ETHYL ESTERS
  12. SOMA [Concomitant]
     Active Substance: CARISOPRODOL
  13. GABAPENTIN. [Suspect]
     Active Substance: GABAPENTIN
  14. HYDROCODONE [Concomitant]
     Active Substance: HYDROCODONE
  15. VITAMIN E [Concomitant]
     Active Substance: .ALPHA.-TOCOPHEROL
  16. XANAX [Suspect]
     Active Substance: ALPRAZOLAM
  17. HYDROXYZINE [Concomitant]
     Active Substance: HYDROXYZINE HYDROCHLORIDE
  18. OMEPRAZOLE. [Concomitant]
     Active Substance: OMEPRAZOLE

REACTIONS (9)
  - Neuroleptic malignant syndrome [None]
  - Neutropenia [None]
  - Constipation [None]
  - Gait disturbance [None]
  - Drug ineffective [None]
  - Insomnia [None]
  - Haematochezia [None]
  - Abnormal faeces [None]
  - Feeling jittery [None]

NARRATIVE: CASE EVENT DATE: 20161018
